FAERS Safety Report 17524902 (Version 1)
Quarter: 2020Q1

REPORT INFORMATION
  Report Type: Spontaneous
  Country: US (occurrence: US)
  Receive Date: 20200303
  Receipt Date: 20200303
  Transmission Date: 20200409
  Serious: No
  Sender: FDA-Public Use
  Company Number: None

PATIENT
  Age: 67 Year
  Sex: Male

DRUGS (1)
  1. BRIMONIDINE (BRIMONIDINE TARTRATE 0.2% SOLN, OPH) [Suspect]
     Active Substance: BRIMONIDINE TARTRATE
     Dates: start: 20190319, end: 20200108

REACTIONS (4)
  - Eye pain [None]
  - Eye pruritus [None]
  - Ocular hyperaemia [None]
  - Eye swelling [None]

NARRATIVE: CASE EVENT DATE: 20200108
